FAERS Safety Report 9467152 (Version 1)
Quarter: 2013Q3

REPORT INFORMATION
  Report Type: Report from Study
  Country: BE (occurrence: BE)
  Receive Date: 20130820
  Receipt Date: 20130820
  Transmission Date: 20140515
  Serious: Yes (Death)
  Sender: FDA-Public Use
  Company Number: BE-ROCHE-1264464

PATIENT
  Sex: Male

DRUGS (1)
  1. AVASTIN [Suspect]
     Indication: GLIOBLASTOMA
     Dosage: 1 VIAL OF 100 MG/4ML AND 24 VIALS OF 400 MG/16ML
     Route: 042
     Dates: start: 20121206, end: 20130513

REACTIONS (1)
  - Disease progression [Fatal]
